FAERS Safety Report 16266394 (Version 1)
Quarter: 2019Q2

REPORT INFORMATION
  Report Type: Spontaneous
  Country: NL (occurrence: NL)
  Receive Date: 20190502
  Receipt Date: 20190502
  Transmission Date: 20190711
  Serious: Yes (Hospitalization)
  Sender: FDA-Public Use
  Company Number: NL-MYLANLABS-2019M1041968

PATIENT
  Age: 32 Year
  Sex: Female
  Weight: 83 kg

DRUGS (10)
  1. SEROQUEL [Suspect]
     Active Substance: QUETIAPINE FUMARATE
     Indication: PRODUCT USED FOR UNKNOWN INDICATION
     Dosage: 1 DOSAGE FORM, 1 X D 1 TABLET X 1 VAN 300 MG TOTAAL 700MG P D
     Route: 048
     Dates: start: 2011
  2. SEROQUEL [Suspect]
     Active Substance: QUETIAPINE FUMARATE
     Indication: PRODUCT USED FOR UNKNOWN INDICATION
     Dosage: 50 MILLIGRAM, Q8H,3 X D 1 TABLET
     Route: 048
     Dates: start: 2011
  3. TRUXAL                             /00012101/ [Suspect]
     Active Substance: CHLORPROTHIXENE
     Indication: PRODUCT USED FOR UNKNOWN INDICATION
     Dosage: 15 MILLIGRAM, BID,2 X D 1 TABLET
     Route: 048
     Dates: start: 2003
  4. DIPIPERON [Suspect]
     Active Substance: PIPAMPERONE
     Dosage: 40 MILLIGRAM, QD
     Route: 048
     Dates: start: 2011
  5. HALDOL [Suspect]
     Active Substance: HALOPERIDOL
     Indication: TOURETTE^S DISORDER
     Dosage: 2 MILLIGRAM, BID,2 X D 2 MGR
     Route: 048
     Dates: start: 1993
  6. FLUANXOL                           /00109702/ [Suspect]
     Active Substance: FLUPENTIXOL
     Indication: PRODUCT USED FOR UNKNOWN INDICATION
     Dosage: 5 MILLIGRAM, BID,2 X D 1 TABLET
     Route: 048
     Dates: start: 2003
  7. DIPIPERON [Suspect]
     Active Substance: PIPAMPERONE
     Indication: TOURETTE^S DISORDER
     Dosage: 1 DOSAGE FORM, BID,2 X D
     Route: 060
     Dates: start: 1993
  8. SEROQUEL [Suspect]
     Active Substance: QUETIAPINE FUMARATE
     Indication: PRODUCT USED FOR UNKNOWN INDICATION
     Dosage: 75 MILLIGRAM, QD,3 TABLET V D NACHT
     Route: 048
     Dates: start: 2011
  9. ORAP [Suspect]
     Active Substance: PIMOZIDE
     Indication: TOURETTE^S DISORDER
     Dosage: UNK
     Route: 048
     Dates: start: 1992
  10. PAROXETINE. [Suspect]
     Active Substance: PAROXETINE
     Indication: PRODUCT USED FOR UNKNOWN INDICATION
     Dosage: 30 MILLIGRAM, QD,1 X D 1 TABLET
     Route: 048
     Dates: start: 2012

REACTIONS (2)
  - Withdrawal syndrome [Recovered/Resolved with Sequelae]
  - Tardive dyskinesia [Recovered/Resolved with Sequelae]

NARRATIVE: CASE EVENT DATE: 2014
